FAERS Safety Report 6878517-X (Version None)
Quarter: 2010Q3

REPORT INFORMATION
  Report Type: 
  Country: None (occurrence: None)
  Receive Date: 20100727
  Receipt Date: 20100716
  Transmission Date: 20110219
  Serious: Yes (Other)
  Sender: FDA-Public Use
  Company Number: US-ABBOTT-10P-163-0658198-00

PATIENT
  Sex: Female

DRUGS (10)
  1. HUMIRA [Suspect]
     Indication: RHEUMATOID ARTHRITIS
     Route: 058
  2. HUMIRA [Suspect]
     Indication: RHEUMATOID ARTHRITIS
     Dosage: WAS OFF OF MED FOR 1 YEAR PRIOR TO RESTARTING IT.
     Route: 058
     Dates: start: 20080101, end: 20100401
  3. HUMIRA [Suspect]
     Route: 058
     Dates: start: 20100501
  4. HUMIRA [Suspect]
     Route: 058
  5. METHOTREXATE [Concomitant]
     Indication: RHEUMATOID ARTHRITIS
     Dates: start: 20080101, end: 20100401
  6. METHOTREXATE [Concomitant]
     Dates: start: 20100501
  7. METHOTREXATE [Concomitant]
  8. IBUPROFEN TABLETS [Concomitant]
     Indication: PRODUCT USED FOR UNKNOWN INDICATION
  9. TRAZODONE HCL [Concomitant]
     Indication: INSOMNIA
     Dosage: TRYING TO WEAN OFF MEDICATION.
  10. TRAZODONE HCL [Concomitant]
     Indication: DEPRESSION

REACTIONS (5)
  - ARTERIAL RUPTURE [None]
  - FEELING ABNORMAL [None]
  - PAIN IN EXTREMITY [None]
  - RESPIRATORY TRACT INFECTION [None]
  - VARICOSE VEIN [None]
